FAERS Safety Report 9501643 (Version 2)
Quarter: 2013Q3

REPORT INFORMATION
  Report Type: Spontaneous
  Country: US (occurrence: US)
  Receive Date: 20130905
  Receipt Date: 20130924
  Transmission Date: 20140515
  Serious: Yes (Other)
  Sender: FDA-Public Use
  Company Number: US-BAYER-2013-107564

PATIENT
  Age: 21 Year
  Sex: Female
  Weight: 63.49 kg

DRUGS (3)
  1. MIRENA [Suspect]
     Indication: CONTRACEPTION
     Dosage: 20 MCG/24HR, CONT
     Route: 015
     Dates: start: 20130606, end: 20130830
  2. HYDROXYZINE [Concomitant]
     Indication: STRESS
     Dosage: 25 MG, UNK
     Route: 048
     Dates: start: 20130711, end: 20130809
  3. TRAZODONE [Concomitant]
     Dosage: 50 MG, UNK
     Route: 048
     Dates: start: 20130809

REACTIONS (4)
  - Genital haemorrhage [Recovering/Resolving]
  - Abdominal pain lower [Recovering/Resolving]
  - Device expulsion [Recovered/Resolved]
  - Abdominal pain [Recovering/Resolving]
